FAERS Safety Report 25051017 (Version 2)
Quarter: 2025Q1

REPORT INFORMATION
  Report Type: Report from Study
  Country: NL (occurrence: NL)
  Receive Date: 20250307
  Receipt Date: 20250314
  Transmission Date: 20250409
  Serious: Yes (Death, Other)
  Sender: VERITY PHARMACEUTICALS INC.
  Company Number: NL-VER-202500020

PATIENT
  Age: 70 Year
  Sex: Male

DRUGS (3)
  1. TRIPTORELIN PAMOATE [Suspect]
     Active Substance: TRIPTORELIN PAMOATE
     Indication: Prostate cancer
     Dosage: SUSPENSION FOR INJECTION
     Route: 030
     Dates: start: 20211015
  2. TRIPTORELIN PAMOATE [Suspect]
     Active Substance: TRIPTORELIN PAMOATE
     Indication: Prostate cancer
     Dosage: SUSPENSION FOR INJECTION
     Route: 030
     Dates: start: 20241002
  3. TRIPTORELIN PAMOATE [Suspect]
     Active Substance: TRIPTORELIN PAMOATE
     Indication: Prostate cancer
     Dosage: SUSPENSION FOR INJECTION
     Route: 030
     Dates: start: 20250103

REACTIONS (1)
  - Death [Fatal]

NARRATIVE: CASE EVENT DATE: 20250210
